FAERS Safety Report 19579306 (Version 1)
Quarter: 2021Q3

REPORT INFORMATION
  Report Type: Spontaneous
  Country: AU (occurrence: AU)
  Receive Date: 20210719
  Receipt Date: 20210719
  Transmission Date: 20211014
  Serious: Yes (Other)
  Sender: FDA-Public Use
  Company Number: AU-ANIPHARMA-2021-AU-000199

PATIENT
  Age: 40 Year
  Sex: Female

DRUGS (1)
  1. TERBUTALINE SULFATE TABLETS USP (NON?SPECIFIC) [Suspect]
     Active Substance: TERBUTALINE SULFATE
     Indication: COMPLICATION OF PREGNANCY

REACTIONS (1)
  - Intestinal pseudo-obstruction [Unknown]
